FAERS Safety Report 8869374 (Version 1)
Quarter: 2012Q4

REPORT INFORMATION
  Report Type: 
  Country: US (occurrence: US)
  Receive Date: 20121023
  Receipt Date: 20121023
  Transmission Date: 20130627
  Serious: No
  Sender: FDA-Public Use
  Company Number: US-AMGEN-USASP2012053597

PATIENT
  Age: 55 Year
  Sex: Female
  Weight: 71.36 kg

DRUGS (12)
  1. ENBREL [Suspect]
     Indication: PRODUCT USED FOR UNKNOWN INDICATION
     Dosage: 50 mg, UNK
     Route: 058
  2. ENBREL [Suspect]
  3. TRAZODONE [Concomitant]
     Dosage: 50 mg, UNK
  4. VITAMIN E                          /00110501/ [Concomitant]
     Dosage: 1000 IU, UNK
  5. BUPROPION HYDROCHLORIDE [Concomitant]
     Dosage: 300 mg, UNK
  6. MULTIVITAMIN                       /00097801/ [Concomitant]
     Dosage: UNK
  7. MINERALS NOS [Concomitant]
     Dosage: UNK
  8. VITAMIN D                          /00318501/ [Concomitant]
     Dosage: 1000 IU, UNK
  9. ADDERALL [Concomitant]
     Dosage: 30 mg, UNK
  10. VITAMIN B12                        /00056201/ [Concomitant]
     Dosage: 1000 UNK, UNK
  11. CALCIUM + VIT D [Concomitant]
     Dosage: UNK
  12. MAGNESIUM [Concomitant]
     Dosage: 500 mg, UNK

REACTIONS (3)
  - Sinus congestion [Unknown]
  - Increased upper airway secretion [Unknown]
  - Malaise [Unknown]
